FAERS Safety Report 4608233-6 (Version None)
Quarter: 2005Q2

REPORT INFORMATION
  Report Type: 
  Country: None (occurrence: None)
  Receive Date: 20050303
  Receipt Date: 20041115
  Transmission Date: 20051028
  Serious: No
  Sender: FDA-Public Use
  Company Number: 702285

PATIENT
  Age: 31 Year
  Sex: Female

DRUGS (2)
  1. AMEVIVE [Suspect]
     Indication: PSORIASIS
     Dosage: SEE IMAGE
     Route: 030
     Dates: end: 20040909
  2. AMEVIVE [Suspect]
     Indication: PSORIASIS
     Dosage: SEE IMAGE
     Route: 030
     Dates: start: 20040921

REACTIONS (1)
  - BRONCHITIS [None]
